FAERS Safety Report 10180004 (Version 2)
Quarter: 2014Q2

REPORT INFORMATION
  Report Type: Spontaneous
  Country: US (occurrence: US)
  Receive Date: 20140519
  Receipt Date: 20140519
  Transmission Date: 20141212
  Serious: Yes (Other)
  Sender: FDA-Public Use
  Company Number: US-BRISTOL-MYERS SQUIBB COMPANY-19895259

PATIENT
  Age: 67 Year
  Sex: Male

DRUGS (1)
  1. BARACLUDE TABS 1.0 MG [Suspect]
     Indication: CHRONIC HEPATITIS B
     Dosage: TABS
     Route: 048
     Dates: start: 200704, end: 20140106

REACTIONS (1)
  - Drug resistance [Unknown]
